FAERS Safety Report 23959980 (Version 1)
Quarter: 2024Q2

REPORT INFORMATION
  Report Type: Spontaneous
  Country: CA (occurrence: CA)
  Receive Date: 20240611
  Receipt Date: 20240611
  Transmission Date: 20240716
  Serious: Yes (Other)
  Sender: FDA-Public Use
  Company Number: CA-ADVANZ PHARMA-202405004536

PATIENT

DRUGS (11)
  1. PILOCARPINE [Suspect]
     Active Substance: PILOCARPINE
     Dosage: UNK(SALAGEN)
     Dates: end: 2024
  2. RUXIENCE [Suspect]
     Active Substance: RITUXIMAB-PVVR
     Indication: Sjogren^s syndrome
     Dosage: 1000 MG, Q6M (SINGLE DOSE)
     Route: 042
     Dates: start: 20220913
  3. RUXIENCE [Suspect]
     Active Substance: RITUXIMAB-PVVR
     Dosage: 1000 MG, AFTER 25 WEEKS AND 6 DAYS
     Route: 042
     Dates: start: 20230926
  4. RUXIENCE [Suspect]
     Active Substance: RITUXIMAB-PVVR
     Dosage: 1000 MG, Q6M (SINGLE DOSE, DAY 1 RETREATMENT)
     Route: 042
     Dates: start: 20240422
  5. ACETAMlNOPHEN [Concomitant]
     Indication: Premedication
  6. DIPHENHYDRAMINE [Concomitant]
     Active Substance: DIPHENHYDRAMINE
     Indication: Premedication
     Dosage: UNK
  7. DICLOFENAC [Concomitant]
     Active Substance: DICLOFENAC
     Dosage: UNK
  8. J CAL [Concomitant]
     Dosage: UNK
  9. FOLIC ACID [Concomitant]
     Active Substance: FOLIC ACID
     Dosage: UNK
  10. METHYLPREDNISOLONE [Concomitant]
     Active Substance: METHYLPREDNISOLONE
     Indication: Premedication
  11. METHOTREXATE [Concomitant]
     Active Substance: METHOTREXATE
     Dosage: UNK

REACTIONS (9)
  - Vitreous detachment [Unknown]
  - Pneumonia [Not Recovered/Not Resolved]
  - Hypertension [Not Recovered/Not Resolved]
  - Blood pressure systolic increased [Recovered/Resolved]
  - Fatigue [Not Recovered/Not Resolved]
  - Pain [Unknown]
  - Infusion site extravasation [Unknown]
  - Upper respiratory tract infection [Unknown]
  - Vein disorder [Unknown]

NARRATIVE: CASE EVENT DATE: 20230926
